FAERS Safety Report 20418424 (Version 3)
Quarter: 2022Q2

REPORT INFORMATION
  Report Type: Spontaneous
  Country: US (occurrence: US)
  Receive Date: 20220202
  Receipt Date: 20220420
  Transmission Date: 20220721
  Serious: Yes (Other)
  Sender: FDA-Public Use
  Company Number: US-PFIZER INC-202200148330

PATIENT
  Age: 53 Year
  Sex: Female

DRUGS (4)
  1. XELJANZ XR [Suspect]
     Active Substance: TOFACITINIB CITRATE
     Indication: Rheumatoid arthritis
     Dosage: 11 MG, 1X/DAY (ONCE DAILY)
     Route: 048
     Dates: start: 202111, end: 202202
  2. HYDROXYCHLOROQUINE [Concomitant]
     Active Substance: HYDROXYCHLOROQUINE
     Dosage: UNK
  3. PREDNISONE [Concomitant]
     Active Substance: PREDNISONE
     Dosage: 5 MG, 1X/DAY
  4. GABAPENTIN [Concomitant]
     Active Substance: GABAPENTIN
     Dosage: 75 MG, 3X/DAY

REACTIONS (13)
  - Arthritis [Unknown]
  - Spinal operation [Unknown]
  - Hip surgery [Unknown]
  - Hip arthroplasty [Unknown]
  - Drug ineffective [Unknown]
  - Arthralgia [Unknown]
  - Anxiety [Unknown]
  - Hypertension [Unknown]
  - Fibromyalgia [Unknown]
  - Pain in extremity [Unknown]
  - Muscle spasms [Unknown]
  - Nasopharyngitis [Unknown]
  - Feeling abnormal [Unknown]
